FAERS Safety Report 5394933-X (Version None)
Quarter: 2007Q3

REPORT INFORMATION
  Report Type: 
  Country: None (occurrence: None)
  Receive Date: 20070720
  Receipt Date: 20070716
  Transmission Date: 20080115
  Serious: Yes (Other)
  Sender: FDA-Public Use
  Company Number: 200707AGG00672

PATIENT
  Age: 75 Year
  Sex: Male

DRUGS (2)
  1. AGGRASTAT [Suspect]
     Indication: ACUTE MYOCARDIAL INFARCTION
     Dosage: (4.5 ML TOTAL INTRAVENOUS BOLUS), (8 ML TOTAL INTRAVENOUS DRIP)
     Route: 040
     Dates: start: 20070508, end: 20070508
  2. AGGRASTAT [Suspect]
     Indication: ACUTE MYOCARDIAL INFARCTION
     Dosage: (4.5 ML TOTAL INTRAVENOUS BOLUS), (8 ML TOTAL INTRAVENOUS DRIP)
     Route: 040
     Dates: start: 20070508, end: 20070508

REACTIONS (1)
  - VENTRICULAR TACHYCARDIA [None]
